FAERS Safety Report 10158958 (Version 1)
Quarter: 2014Q2

REPORT INFORMATION
  Report Type: Spontaneous
  Country: US (occurrence: US)
  Receive Date: 20140508
  Receipt Date: 20140508
  Transmission Date: 20141212
  Serious: No
  Sender: FDA-Public Use
  Company Number: US-BIOGENIDEC-2014BI039856

PATIENT
  Age: 62 Year
  Sex: Female

DRUGS (4)
  1. TECFIDERA [Suspect]
     Indication: MULTIPLE SCLEROSIS
     Route: 048
     Dates: start: 20140419
  2. TECFIDERA [Suspect]
     Indication: MULTIPLE SCLEROSIS
     Route: 048
     Dates: start: 20140419, end: 20140420
  3. TECFIDERA [Suspect]
     Indication: MULTIPLE SCLEROSIS
  4. TECFIDERA [Suspect]
     Indication: MULTIPLE SCLEROSIS
     Route: 048
     Dates: start: 20140419, end: 20140421

REACTIONS (10)
  - Pyrexia [Not Recovered/Not Resolved]
  - Skin warm [Recovered/Resolved]
  - Eye swelling [Recovered/Resolved]
  - Urticaria [Not Recovered/Not Resolved]
  - Underdose [Recovered/Resolved]
  - Rash generalised [Recovered/Resolved]
  - Pruritus generalised [Not Recovered/Not Resolved]
  - Flushing [Not Recovered/Not Resolved]
  - Feeling hot [Recovered/Resolved]
  - Burning sensation [Not Recovered/Not Resolved]
